FAERS Safety Report 9204502 (Version 1)
Quarter: 2013Q1

REPORT INFORMATION
  Report Type: Spontaneous
  Country: US (occurrence: None)
  Receive Date: 20120709
  Receipt Date: 20120709
  Transmission Date: 20140127
  Serious: Yes (Other)
  Sender: FDA-Public Use
  Company Number: PHEH2011US008757????

PATIENT
  Age: 83 Year
  Sex: Male
  Weight: 88.7 kg

DRUGS (5)
  1. GLEEVEC [Suspect]
     Indication: CHRONIC MYELOID LEUKAEMIA
     Route: 048
     Dates: start: 20110830
  2. TOPROL XL (METOPROLOL SUCCINATE) TABLET [Concomitant]
  3. IMIQUIMOD (IMIQUIMOD CREAM [Concomitant]
  4. BICALUTAMIDE (BICALUTAMIDE)TABLET [Concomitant]
  5. HYDROCHLOROTHIAZIDE (HYDROCHLOROTHIAZIDE) TABLET [Concomitant]

REACTIONS (12)
  - Blood pressure systolic increased [None]
  - Abdominal discomfort [None]
  - Dysgeusia [None]
  - Retching [None]
  - Nausea [None]
  - Vomiting [None]
  - Rash [None]
  - Malaise [None]
  - Asthenia [None]
  - Fatigue [None]
  - Diarrhoea [None]
  - Nasal congestion [None]
